FAERS Safety Report 22529003 (Version 2)
Quarter: 2023Q2

REPORT INFORMATION
  Report Type: Spontaneous
  Country: PT (occurrence: None)
  Receive Date: 20230607
  Receipt Date: 20230612
  Transmission Date: 20230721
  Serious: Yes (Life-Threatening, Hospitalization, Disabling)
  Sender: FDA-Public Use
  Company Number: 2023A129174

PATIENT
  Age: 62 Year
  Sex: Male
  Weight: 42 kg

DRUGS (12)
  1. TICAGRELOR [Suspect]
     Active Substance: TICAGRELOR
     Indication: Acute myocardial infarction
     Dosage: 180 MG EM DOSE DE CARGA180.0MG UNKNOWN
     Route: 048
     Dates: start: 20230504, end: 20230504
  2. ASPIRIN [Suspect]
     Active Substance: ASPIRIN
     Indication: Acute myocardial infarction
     Dosage: 300MG IN LOADING DOSE, FOLLOWED BY 100 MG 1X/DAY; IT WAS ADMINISTERED AS A BREAD FOR ORAL SOLUTION
     Route: 048
     Dates: start: 20230503, end: 20230504
  3. INTEGRILIN [Suspect]
     Active Substance: EPTIFIBATIDE
     Indication: Acute myocardial infarction
     Dosage: 4 ML BOLUS, FOLLOWED BY INFUSION AT 7 ML/H
     Route: 042
     Dates: start: 20230504, end: 20230504
  4. ENOXAPARIN SODIUM [Suspect]
     Active Substance: ENOXAPARIN SODIUM
     Indication: Acute myocardial infarction
     Dosage: 40 MG 12/12 HORAS
     Route: 058
     Dates: start: 20230503, end: 20230504
  5. HEPARIN SODIUM [Suspect]
     Active Substance: HEPARIN SODIUM
     Indication: Coronary angioplasty
     Dosage: 5000 ARB UNIT, 5000 U BOLUS
     Route: 042
     Dates: start: 20230504, end: 20230504
  6. ASPIRIN DL-LYSINE [Suspect]
     Active Substance: ASPIRIN DL-LYSINE
     Indication: Acute myocardial infarction
     Dosage: 300MG IN LOADING DOSE, FOLLOWED BY 100 MG 1X/DAY; IT WAS ADMINISTERED AS A POWDER FOR ORAL SOLUTION
     Route: 048
     Dates: start: 20230503, end: 20230504
  7. ALPRAZOLAM [Concomitant]
     Active Substance: ALPRAZOLAM
  8. SENOSIDE [Concomitant]
  9. LACTULOSE [Concomitant]
     Active Substance: LACTULOSE
  10. ATORVASTATIN [Concomitant]
     Active Substance: ATORVASTATIN
  11. PANTOPRAZOLE [Concomitant]
     Active Substance: PANTOPRAZOLE
  12. BISACODYL [Concomitant]
     Active Substance: BISACODYL

REACTIONS (2)
  - Haemorrhagic stroke [Not Recovered/Not Resolved]
  - Haemorrhage intracranial [Not Recovered/Not Resolved]

NARRATIVE: CASE EVENT DATE: 20230504
